FAERS Safety Report 17075657 (Version 1)
Quarter: 2019Q4

REPORT INFORMATION
  Report Type: Spontaneous
  Country: JP (occurrence: JP)
  Receive Date: 20191126
  Receipt Date: 20191126
  Transmission Date: 20200122
  Serious: Yes (Hospitalization)
  Sender: FDA-Public Use
  Company Number: JP-PFIZER INC-2019503841

PATIENT
  Age: 8 Decade
  Sex: Male
  Weight: 74 kg

DRUGS (3)
  1. SPIRONOLACTONE. [Suspect]
     Active Substance: SPIRONOLACTONE
     Dosage: 50 MG, UNK
  2. AZOSEMIDE [Suspect]
     Active Substance: AZOSEMIDE
     Dosage: 60 MG, UNK
  3. TRICHLORMETHIAZIDE [Suspect]
     Active Substance: TRICHLORMETHIAZIDE
     Dosage: 4 MG, UNK

REACTIONS (4)
  - Dehydration [Recovering/Resolving]
  - Diabetes mellitus [Recovering/Resolving]
  - Renal disorder [Recovering/Resolving]
  - Cardiac failure [Recovering/Resolving]
